FAERS Safety Report 9186294 (Version 2)
Quarter: 2013Q2

REPORT INFORMATION
  Report Type: Spontaneous
  Country: JP (occurrence: JP)
  Receive Date: 20130325
  Receipt Date: 20130410
  Transmission Date: 20140414
  Serious: Yes (Other)
  Sender: FDA-Public Use
  Company Number: JP-JNJFOC-20130216246

PATIENT
  Age: 16 Year
  Sex: Female

DRUGS (2)
  1. REMICADE [Suspect]
     Indication: CROHN^S DISEASE
     Route: 042
  2. REMICADE [Suspect]
     Indication: CROHN^S DISEASE
     Dosage: 15TH DOSE
     Route: 042

REACTIONS (2)
  - Dyspnoea [Unknown]
  - Infusion related reaction [Unknown]
